FAERS Safety Report 12073122 (Version 1)
Quarter: 2016Q1

REPORT INFORMATION
  Report Type: Spontaneous
  Country: US (occurrence: None)
  Receive Date: 20160211
  Receipt Date: 20160211
  Transmission Date: 20160526
  Serious: No
  Sender: FDA-Public Use
  Company Number: None

PATIENT
  Age: 72 Year
  Sex: Female
  Weight: 117 kg

DRUGS (1)
  1. HEPARIN [Suspect]
     Active Substance: HEPARIN SODIUM
     Indication: ATRIAL FIBRILLATION
     Dosage: DRIP PER PROTOCOL INTRAVENOUS
     Route: 042
     Dates: start: 20150115, end: 20150117

REACTIONS (1)
  - Chest wall haematoma [None]

NARRATIVE: CASE EVENT DATE: 20150117
